FAERS Safety Report 9578325 (Version 1)
Quarter: 2013Q4

REPORT INFORMATION
  Report Type: Spontaneous
  Country: US (occurrence: US)
  Receive Date: 20131001
  Receipt Date: 20131001
  Transmission Date: 20140711
  Serious: No
  Sender: FDA-Public Use
  Company Number: US-AMGEN-USASP2013012465

PATIENT
  Age: 48 Year
  Sex: Female
  Weight: 66.67 kg

DRUGS (9)
  1. ENBREL [Suspect]
     Indication: PRODUCT USED FOR UNKNOWN INDICATION
     Dosage: 50 MG, 2 TIMES/WK, (SEPARATE DOSES 72-96 HOURS) FOR 3 MONTHS
     Route: 058
  2. PROTONIX [Concomitant]
     Dosage: 20 MG, UNK
  3. CRESTOR [Concomitant]
     Dosage: 10 MG, UNK
  4. CELEXA                             /00582602/ [Concomitant]
     Dosage: 10 MG, UNK
  5. SOMA [Concomitant]
     Dosage: 350 MG, UNK
  6. VITAMIN D                          /00107901/ [Concomitant]
     Dosage: 1000 UNIT, UNK
  7. FISH OIL [Concomitant]
     Dosage: UNK
  8. ACIDOPHILUS [Concomitant]
     Dosage: UNK
  9. MULTIVITAMIN                       /00097801/ [Concomitant]
     Dosage: UNK

REACTIONS (1)
  - Upper respiratory tract infection [Unknown]
